FAERS Safety Report 9490772 (Version 1)
Quarter: 2013Q3

REPORT INFORMATION
  Report Type: Spontaneous
  Country: US (occurrence: US)
  Receive Date: 20130830
  Receipt Date: 20130830
  Transmission Date: 20140515
  Serious: No
  Sender: FDA-Public Use
  Company Number: US-BAYER-2013-104983

PATIENT
  Age: 69 Year
  Sex: Female
  Weight: 72.56 kg

DRUGS (5)
  1. ALEVE GELCAPS [Suspect]
     Indication: BACK PAIN
     Dosage: 1 DF, ONCE
     Route: 048
     Dates: start: 20130822, end: 20130822
  2. LISINOPRIL [Concomitant]
     Indication: BLOOD PRESSURE ABNORMAL
  3. SIMVASTATIN [Concomitant]
     Indication: BLOOD CHOLESTEROL ABNORMAL
  4. NATUREMADE BALANCED B [Concomitant]
  5. ASPIRIN [Concomitant]

REACTIONS (2)
  - Muscular weakness [Recovered/Resolved]
  - Drug ineffective [None]
